FAERS Safety Report 6044018-4 (Version None)
Quarter: 2009Q1

REPORT INFORMATION
  Report Type: 
  Country: None (occurrence: None)
  Receive Date: 20090114
  Receipt Date: 20090114
  Transmission Date: 20090719
  Serious: Yes (Hospitalization)
  Sender: FDA-Public Use
  Company Number: None

PATIENT
  Age: 15 Year
  Sex: Male
  Weight: 61.2356 kg

DRUGS (2)
  1. REGLAN [Suspect]
     Indication: MIGRAINE
     Dosage: JAN. 6 AND 7TH OF 2009 ONCE EVERY 8 HOURS 3RD DOSE OF MED DID THIS
  2. REGLAN [Suspect]
     Indication: PROPHYLAXIS OF NAUSEA AND VOMITING
     Dosage: JAN. 6 AND 7TH OF 2009 ONCE EVERY 8 HOURS 3RD DOSE OF MED DID THIS

REACTIONS (6)
  - DYSKINESIA [None]
  - MOVEMENT DISORDER [None]
  - PAIN [None]
  - PRODUCT QUALITY ISSUE [None]
  - SPEECH DISORDER [None]
  - SWOLLEN TONGUE [None]
